FAERS Safety Report 5170795-0 (Version None)
Quarter: 2006Q4

REPORT INFORMATION
  Report Type: 
  Country: None (occurrence: None)
  Receive Date: 20061205
  Receipt Date: 20061205
  Transmission Date: 20070319
  Serious: Yes (Disabling)
  Sender: FDA-Public Use
  Company Number: None

PATIENT
  Age: 19 Year
  Sex: Male
  Weight: 86.1834 kg

DRUGS (2)
  1. FLUOXETINE [Suspect]
     Indication: OBSESSIVE-COMPULSIVE DISORDER
     Dosage: 100 MG P.O. QAM P.C.
     Dates: start: 20040719, end: 20041015
  2. ATIVAN [Concomitant]

REACTIONS (9)
  - ANXIETY [None]
  - COGNITIVE DISORDER [None]
  - CONDITION AGGRAVATED [None]
  - DYSPHORIA [None]
  - MENTAL STATUS CHANGES [None]
  - OBSESSIVE-COMPULSIVE DISORDER [None]
  - PERFORMANCE STATUS DECREASED [None]
  - SOCIAL PROBLEM [None]
  - THERAPEUTIC RESPONSE UNEXPECTED WITH DRUG SUBSTITUTION [None]
